FAERS Safety Report 8256374-7 (Version None)
Quarter: 2012Q2

REPORT INFORMATION
  Report Type: 
  Country: None (occurrence: None)
  Receive Date: 20120403
  Receipt Date: 20120401
  Transmission Date: 20120825
  Serious: Yes (Other)
  Sender: FDA-Public Use
  Company Number: US-ROXANE LABORATORIES, INC.-2012-RO-00982RO

PATIENT
  Sex: Female

DRUGS (1)
  1. METHADONE HCL [Suspect]

REACTIONS (1)
  - DRUG DIVERSION [None]
